FAERS Safety Report 5620725-X (Version None)
Quarter: 2008Q1

REPORT INFORMATION
  Report Type: 
  Country: None (occurrence: None)
  Receive Date: 20080208
  Receipt Date: 20080205
  Transmission Date: 20080703
  Serious: Yes (Other)
  Sender: FDA-Public Use
  Company Number: US-MERCK-0801USA02905

PATIENT
  Age: 10 Year
  Sex: Male
  Weight: 57 kg

DRUGS (3)
  1. SINGULAIR [Suspect]
     Indication: RHINITIS ALLERGIC
     Route: 048
     Dates: start: 20050601, end: 20080101
  2. RHINOCORT [Concomitant]
     Indication: RHINITIS ALLERGIC
     Dates: start: 20050101
  3. ALBUTEROL [Concomitant]
     Indication: ASTHMA
     Dates: start: 20050601

REACTIONS (2)
  - DERMATITIS CONTACT [None]
  - DRUG ERUPTION [None]
